FAERS Safety Report 7037975-0 (Version None)
Quarter: 2010Q4

REPORT INFORMATION
  Report Type: 
  Country: None (occurrence: None)
  Receive Date: 20101011
  Receipt Date: 20101005
  Transmission Date: 20110411
  Serious: Yes (Hospitalization, Other)
  Sender: FDA-Public Use
  Company Number: US-ROXANE LABORATORIES, INC.-2010-RO-01317RO

PATIENT
  Age: 68 Year
  Sex: Male

DRUGS (10)
  1. MORPHINE [Suspect]
     Indication: BACK PAIN
     Route: 037
  2. MORPHINE [Suspect]
     Dosage: 8 MG
     Route: 037
  3. HYDROMORPHONE HCL [Suspect]
     Indication: BACK PAIN
     Route: 042
  4. HYDROMORPHONE HCL [Suspect]
     Indication: BREAKTHROUGH PAIN
  5. METHADONE [Suspect]
     Indication: BACK PAIN
     Dosage: 10 MG
  6. LIDOCAINE [Suspect]
     Indication: BACK PAIN
  7. BUPIVACAINE HCL [Suspect]
     Indication: BACK PAIN
     Route: 037
  8. BUPIVACAINE HCL [Suspect]
  9. BUPIVACAINE HCL [Suspect]
     Dosage: 2 MG
     Route: 037
  10. ALCOHOL [Suspect]
     Indication: BACK PAIN

REACTIONS (6)
  - CONSTIPATION [None]
  - DELIRIUM [None]
  - DRUG INEFFECTIVE [None]
  - MULTIPLE-DRUG RESISTANCE [None]
  - NEUROTOXICITY [None]
  - SEDATION [None]
